FAERS Safety Report 7189899 (Version 7)
Quarter: 2013Q4

REPORT INFORMATION
  Report Type: Spontaneous
  Country: US (occurrence: US)
  Receive Date: 20091125
  Receipt Date: 20131018
  Transmission Date: 20140711
  Serious: Yes (Death, Hospitalization, Other)
  Sender: FDA-Public Use
  Company Number: PHEH2009US16576

PATIENT
  Age: 69 Year
  Sex: Female
  Weight: 38.95 kg

DRUGS (6)
  1. RECLAST [Suspect]
     Indication: OSTEOPOROSIS
     Route: 042
     Dates: start: 200712
  2. RECLAST [Suspect]
     Route: 042
     Dates: start: 20091008, end: 20091008
  3. REMICADE [Concomitant]
     Indication: RHEUMATOID ARTHRITIS
     Dosage: 6 MG/KG, EVERY 8 WEEKS
     Route: 042
     Dates: start: 20090105, end: 20090928
  4. PREDNISONE [Concomitant]
     Indication: RHEUMATOID ARTHRITIS
     Dosage: 5 MG, QD
     Route: 048
     Dates: start: 20070413, end: 200911
  5. VITAMIN B12 [Concomitant]
     Indication: VITAMIN B12 DECREASED
     Route: 048
  6. ADVIL [Concomitant]
     Indication: ARTHRITIS
     Dosage: 200 MG, PRN
     Route: 048
     Dates: start: 2007, end: 200911

REACTIONS (52)
  - Respiratory failure [Fatal]
  - Respiratory arrest [Fatal]
  - Haemorrhage [Fatal]
  - Pulmonary embolism [Fatal]
  - Thrombosis [Fatal]
  - Pancreatitis [Unknown]
  - Nausea [Unknown]
  - Abdominal pain [Unknown]
  - Urinary tract infection [Unknown]
  - Dehydration [Unknown]
  - Confusional state [Unknown]
  - Fungal infection [Unknown]
  - Renal failure acute [Unknown]
  - Blood creatinine increased [Unknown]
  - Urine output decreased [Unknown]
  - Electrolyte imbalance [Unknown]
  - Hypovolaemia [Unknown]
  - Lethargy [Unknown]
  - Pain [Unknown]
  - Amnesia [Unknown]
  - Eating disorder [Unknown]
  - Dysstasia [Unknown]
  - Weight decreased [Unknown]
  - Heart rate increased [Unknown]
  - Blood pressure increased [Unknown]
  - Influenza [Unknown]
  - Asthenia [Unknown]
  - Hiatus hernia [Unknown]
  - Decreased appetite [Unknown]
  - Hypophosphataemia [Unknown]
  - Hypokalaemia [Unknown]
  - Influenza like illness [Unknown]
  - Oesophageal candidiasis [Unknown]
  - Dysphagia [Unknown]
  - Hypertension [Unknown]
  - Mass [Unknown]
  - Hypoxia [Unknown]
  - Mental status changes [Unknown]
  - Ascites [Unknown]
  - Gastrointestinal oedema [Unknown]
  - Arteriosclerosis coronary artery [Unknown]
  - Kyphoscoliosis [Unknown]
  - Renal atrophy [Unknown]
  - Inflammation [Unknown]
  - Pleomorphic adenoma [Unknown]
  - Aortic calcification [Unknown]
  - Aortic dilatation [Unknown]
  - Aortic disorder [Unknown]
  - Musculoskeletal stiffness [Unknown]
  - Joint stiffness [Unknown]
  - Vomiting [Unknown]
  - Arthralgia [Unknown]
